FAERS Safety Report 7830762-2 (Version None)
Quarter: 2011Q4

REPORT INFORMATION
  Report Type: 
  Country: None (occurrence: None)
  Receive Date: 20111021
  Receipt Date: 20111012
  Transmission Date: 20120403
  Serious: Yes (Hospitalization)
  Sender: FDA-Public Use
  Company Number: US-GLAXOSMITHKLINE-A0845542A

PATIENT
  Age: 70 Year
  Sex: Male
  Weight: 97.3 kg

DRUGS (8)
  1. LISINOPRIL [Concomitant]
  2. ZETIA [Concomitant]
  3. GLYBURIDE [Concomitant]
  4. AVANDIA [Suspect]
     Indication: TYPE 2 DIABETES MELLITUS
     Dosage: 8MG PER DAY
     Route: 048
     Dates: start: 20061001, end: 20070901
  5. PRECOSE [Concomitant]
  6. METFORMIN HCL [Concomitant]
  7. LIPITOR [Concomitant]
  8. ATROVENT [Concomitant]

REACTIONS (3)
  - CORONARY ARTERY DISEASE [None]
  - CARDIAC FAILURE CONGESTIVE [None]
  - PLEURAL EFFUSION [None]
